FAERS Safety Report 21308451 (Version 1)
Quarter: 2022Q3

REPORT INFORMATION
  Report Type: Spontaneous
  Country: DE (occurrence: DE)
  Receive Date: 20220908
  Receipt Date: 20220908
  Transmission Date: 20221027
  Serious: Yes (Other)
  Sender: FDA-Public Use
  Company Number: DE-NOVARTISPH-NVSC2022DE202716

PATIENT
  Age: 22 Year
  Sex: Male

DRUGS (3)
  1. RIBAVIRIN [Suspect]
     Active Substance: RIBAVIRIN
     Indication: Hepatitis E
     Dosage: 200-400 MG, QD
     Route: 065
  2. MABTHERA [Suspect]
     Active Substance: RITUXIMAB
     Indication: Immune thrombocytopenia
     Dosage: THREE CYCLES
     Route: 042
     Dates: start: 201505, end: 201506
  3. MABTHERA [Suspect]
     Active Substance: RITUXIMAB
     Indication: Atypical haemolytic uraemic syndrome

REACTIONS (5)
  - Hepatitis E [Unknown]
  - Suspected transmission of an infectious agent via product [Unknown]
  - Leukopenia [Unknown]
  - Anaemia [Unknown]
  - Off label use [Unknown]
